FAERS Safety Report 8255495-2 (Version None)
Quarter: 2012Q1

REPORT INFORMATION
  Report Type: 
  Country: None (occurrence: None)
  Receive Date: 20120329
  Receipt Date: 20120308
  Transmission Date: 20120608
  Serious: Yes (Hospitalization)
  Sender: FDA-Public Use
  Company Number: 2135225-2012-00032

PATIENT
  Age: 73 Year
  Sex: Female

DRUGS (1)
  1. AETOXISCLEROL TAMPONNE 0.5%, SOL'N I.V. POLIDOCANOL [Suspect]
     Indication: SCLEROTHERAPY
     Dosage: 1ST DAY, I.V.
     Route: 042
     Dates: start: 20120209

REACTIONS (1)
  - PARAESTHESIA [None]
